FAERS Safety Report 5823308-1 (Version None)
Quarter: 2008Q3

REPORT INFORMATION
  Report Type: 
  Country: None (occurrence: None)
  Receive Date: 20080725
  Receipt Date: 20070607
  Transmission Date: 20090109
  Serious: No
  Sender: FDA-Public Use
  Company Number: US-AMGEN-KDL228194

PATIENT
  Sex: Male

DRUGS (2)
  1. EPOGEN [Suspect]
     Indication: RENAL FAILURE CHRONIC
     Dates: start: 20070514
  2. IRON [Concomitant]
     Dates: start: 20070101

REACTIONS (3)
  - IRON DEFICIENCY [None]
  - RETICULOCYTE COUNT INCREASED [None]
  - THERAPEUTIC RESPONSE DECREASED [None]
